FAERS Safety Report 5392382-1 (Version None)
Quarter: 2007Q3

REPORT INFORMATION
  Report Type: 
  Country: None (occurrence: None)
  Receive Date: 20070720
  Receipt Date: 20070713
  Transmission Date: 20080115
  Serious: Yes (Other)
  Sender: FDA-Public Use
  Company Number: A0664619A

PATIENT
  Sex: Male

DRUGS (1)
  1. AVODART [Suspect]
     Indication: DRUG USE FOR UNKNOWN INDICATION
     Route: 065

REACTIONS (4)
  - ALOPECIA [None]
  - BLOOD TESTOSTERONE DECREASED [None]
  - OBESITY [None]
  - TYPE 2 DIABETES MELLITUS [None]
